FAERS Safety Report 9677294 (Version 1)
Quarter: 2013Q4

REPORT INFORMATION
  Report Type: Spontaneous
  Country: US (occurrence: None)
  Receive Date: 20131107
  Receipt Date: 20131107
  Transmission Date: 20140711
  Serious: Yes (Disabling)
  Sender: FDA-Public Use
  Company Number: None

PATIENT
  Age: 19 Month
  Sex: Male
  Weight: 8.94 kg

DRUGS (2)
  1. ALBUTEROL SULFATE [Suspect]
     Indication: WHEEZING
     Dosage: ONE VIAL
     Route: 055
     Dates: start: 20130927, end: 20131101
  2. ALBUTEROL SULFATE [Suspect]
     Indication: DYSPNOEA
     Dosage: ONE VIAL
     Route: 055
     Dates: start: 20130927, end: 20131101

REACTIONS (1)
  - Drug ineffective [None]
